FAERS Safety Report 8395308-1 (Version None)
Quarter: 2012Q2

REPORT INFORMATION
  Report Type: 
  Country: None (occurrence: None)
  Receive Date: 20120530
  Receipt Date: 20120517
  Transmission Date: 20120825
  Serious: Yes (Other)
  Sender: FDA-Public Use
  Company Number: US-BAYER-2012-049792

PATIENT
  Age: 53 Year
  Sex: Male
  Weight: 79.365 kg

DRUGS (1)
  1. ALEVE (CAPLET) [Suspect]
     Indication: MUSCLE STRAIN
     Dosage: 2 DF, UNK
     Route: 048
     Dates: start: 20110101, end: 20120513

REACTIONS (10)
  - PRURITUS [None]
  - ERYTHEMA [None]
  - HYPOAESTHESIA ORAL [None]
  - HYPERSENSITIVITY [None]
  - OCULAR HYPERAEMIA [None]
  - RASH ERYTHEMATOUS [None]
  - PRURITUS GENITAL [None]
  - DIZZINESS [None]
  - TONGUE DISORDER [None]
  - URTICARIA [None]
